FAERS Safety Report 14667159 (Version 1)
Quarter: 2018Q1

REPORT INFORMATION
  Report Type: Spontaneous
  Country: RU (occurrence: RU)
  Receive Date: 20180322
  Receipt Date: 20180322
  Transmission Date: 20180509
  Serious: Yes (Hospitalization)
  Sender: FDA-Public Use
  Company Number: RU-ASTRAZENECA-2018SE34629

PATIENT
  Age: 61 Year
  Sex: Female

DRUGS (5)
  1. CARDICET [Concomitant]
     Dates: start: 201703
  2. CORONAL [Concomitant]
     Dates: start: 201703
  3. THROMBO ASS [Concomitant]
     Active Substance: ASPIRIN
     Dates: start: 201703
  4. BRILINTA [Suspect]
     Active Substance: TICAGRELOR
     Indication: MYOCARDIAL INFARCTION
     Route: 048
     Dates: start: 20170308
  5. NOLIPREL [Concomitant]

REACTIONS (1)
  - Angina pectoris [Recovered/Resolved]
